FAERS Safety Report 5384428-1 (Version None)
Quarter: 2007Q3

REPORT INFORMATION
  Report Type: 
  Country: None (occurrence: None)
  Receive Date: 20070711
  Receipt Date: 20070702
  Transmission Date: 20080115
  Serious: Yes (Other)
  Sender: FDA-Public Use
  Company Number: US-ASTRAZENECA-2006UW07577

PATIENT
  Age: 40 Year
  Sex: Male
  Weight: 59.1 kg

DRUGS (6)
  1. SEROQUEL [Suspect]
     Indication: ANXIETY
     Dosage: 25-100MG DAILY
     Route: 048
     Dates: start: 19980101, end: 20030101
  2. SEROQUEL [Suspect]
     Indication: INSOMNIA
     Dosage: 25-100MG DAILY
     Route: 048
     Dates: start: 19980101, end: 20030101
  3. SEROQUEL [Suspect]
     Route: 048
     Dates: start: 20060101
  4. SEROQUEL [Suspect]
     Route: 048
     Dates: start: 20060101
  5. ZYPREXA [Suspect]
     Dates: start: 19970101
  6. RISPERDAL [Concomitant]
     Dates: start: 19970101

REACTIONS (4)
  - EYE DISORDER [None]
  - HYPERGLYCAEMIA [None]
  - PANCREATITIS [None]
  - VISION BLURRED [None]
